FAERS Safety Report 9165071 (Version 1)
Quarter: 2013Q1

REPORT INFORMATION
  Report Type: Spontaneous
  Country: US (occurrence: None)
  Receive Date: 20130313
  Receipt Date: 20130313
  Transmission Date: 20140127
  Serious: Yes (Hospitalization)
  Sender: FDA-Public Use
  Company Number: None

PATIENT
  Age: 80 Year
  Sex: Male
  Weight: 61.9 kg

DRUGS (1)
  1. METHYLPREDNISOLONE [Suspect]
     Indication: UPPER RESPIRATORY TRACT INFECTION
     Route: 042
     Dates: start: 20121216, end: 20121216

REACTIONS (3)
  - Delirium [None]
  - Psychotic disorder [None]
  - Dyskinesia [None]
